FAERS Safety Report 4882681-1 (Version None)
Quarter: 2006Q1

REPORT INFORMATION
  Report Type: 
  Country: None (occurrence: None)
  Receive Date: 20060113
  Receipt Date: 20060105
  Transmission Date: 20060701
  Serious: Yes (Other)
  Sender: FDA-Public Use
  Company Number: USA-2005-0021924

PATIENT
  Age: 56 Year
  Sex: Male

DRUGS (5)
  1. OXYCONTIN [Suspect]
     Indication: CANCER PAIN
     Dosage: SEE IMAGE
     Dates: end: 20040711
  2. OXYCONTIN [Suspect]
     Indication: CANCER PAIN
     Dosage: SEE IMAGE
     Dates: start: 20040711
  3. PREDNISONE [Concomitant]
  4. COUMADIN [Concomitant]
  5. LORTAB [Concomitant]

REACTIONS (3)
  - DYSPHAGIA [None]
  - LUNG CANCER METASTATIC [None]
  - MALIGNANT NEOPLASM PROGRESSION [None]
